FAERS Safety Report 9717054 (Version 2)
Quarter: 2015Q3

REPORT INFORMATION
  Report Type: Spontaneous
  Country: US (occurrence: US)
  Receive Date: 20131127
  Receipt Date: 20150804
  Transmission Date: 20151125
  Serious: No
  Sender: FDA-Public Use
  Company Number: US-GILEAD-2009-0020794

PATIENT
  Age: 52 Year
  Sex: Female
  Weight: 131.54 kg

DRUGS (11)
  1. FUROSEMIDE. [Concomitant]
     Active Substance: FUROSEMIDE
  2. ARAVA [Concomitant]
     Active Substance: LEFLUNOMIDE
  3. LISINOPRIL. [Concomitant]
     Active Substance: LISINOPRIL
  4. TRAMADOL. [Concomitant]
     Active Substance: TRAMADOL
  5. POTASSIUM CHLORIDE. [Concomitant]
     Active Substance: POTASSIUM CHLORIDE
  6. COREG [Concomitant]
     Active Substance: CARVEDILOL
  7. LIPITOR [Concomitant]
     Active Substance: ATORVASTATIN CALCIUM
  8. MELOXICAM. [Concomitant]
     Active Substance: MELOXICAM
  9. LETAIRIS [Suspect]
     Active Substance: AMBRISENTAN
     Indication: PULMONARY ARTERIAL HYPERTENSION
     Route: 048
     Dates: start: 20081204
  10. PAXIL [Concomitant]
     Active Substance: PAROXETINE HYDROCHLORIDE
  11. PREDNISONE. [Concomitant]
     Active Substance: PREDNISONE

REACTIONS (1)
  - Rash pruritic [Unknown]
